FAERS Safety Report 9992654 (Version 1)
Quarter: 2014Q1

REPORT INFORMATION
  Report Type: Spontaneous
  Country: US (occurrence: US)
  Receive Date: 20140310
  Receipt Date: 20140310
  Transmission Date: 20141002
  Serious: No
  Sender: FDA-Public Use
  Company Number: US-PFIZER INC-2014067220

PATIENT
  Age: 59 Year
  Sex: Female

DRUGS (1)
  1. XELJANZ [Suspect]
     Dosage: 5 MG, 2X/DAY
     Route: 048
     Dates: start: 20140111

REACTIONS (5)
  - Hot flush [Unknown]
  - Energy increased [Unknown]
  - Therapeutic response unexpected [Unknown]
  - Feeling of relaxation [Unknown]
  - Hypersomnia [Unknown]
